FAERS Safety Report 19706074 (Version 2)
Quarter: 2022Q4

REPORT INFORMATION
  Report Type: Spontaneous
  Country: DE (occurrence: DE)
  Receive Date: 20210817
  Receipt Date: 20221101
  Transmission Date: 20230112
  Serious: Yes (Hospitalization, Other)
  Sender: FDA-Public Use
  Company Number: DE-ADRED-06773-01

PATIENT
  Age: 61 Year
  Sex: Male
  Weight: 85 kg

DRUGS (16)
  1. EPLERENONE [Suspect]
     Active Substance: EPLERENONE
     Indication: Product used for unknown indication
     Dosage: 50 MILLIGRAM DAILY; 1-0-0-0,MEDICATION ERRORS
     Route: 048
  2. XIPAMIDE [Suspect]
     Active Substance: XIPAMIDE
     Indication: Product used for unknown indication
     Dosage: 20 MILLIGRAM DAILY; 1-0-0-0,MEDICATION ERRORS
     Route: 048
  3. TORSEMIDE [Suspect]
     Active Substance: TORSEMIDE
     Indication: Product used for unknown indication
     Dosage: 10 MILLIGRAM DAILY; 20 MG, 0.5-0-0-0,MEDICATION ERRORS
     Route: 048
  4. ASPIRIN [Concomitant]
     Active Substance: ASPIRIN
     Indication: Product used for unknown indication
     Dosage: 100 MILLIGRAM DAILY; 1-0-0-0
     Route: 048
  5. Kalinor 1565,66mg [Concomitant]
     Indication: Product used for unknown indication
     Dosage: 1 DOSAGE FORMS DAILY; 2500|1565.66 MG, 1-0-0-0
     Route: 048
  6. Kalinor 1565,66mg [Concomitant]
     Dosage: 1 DOSAGE FORMS DAILY; 2.057|2|2.17 G, 1-0-0-0,
  7. LORAZEPAM [Concomitant]
     Active Substance: LORAZEPAM
     Indication: Product used for unknown indication
     Dosage: 2.5 MG, IF NECESSARY A MAXIMUM OF 2 TABLETS PER DAY
     Route: 060
  8. PROPRANOLOL [Concomitant]
     Active Substance: PROPRANOLOL HYDROCHLORIDE
     Indication: Product used for unknown indication
     Dosage: 20 MILLIGRAM DAILY; 1-0-1-0
     Route: 048
  9. Ornithinaspartat [Concomitant]
     Indication: Product used for unknown indication
     Dosage: 3 GRAM DAILY; 1-0-0-0
     Route: 048
  10. NALOXONE HYDROCHLORIDE\OXYCODONE HYDROCHLORIDE [Concomitant]
     Active Substance: NALOXONE HYDROCHLORIDE\OXYCODONE HYDROCHLORIDE
     Indication: Product used for unknown indication
     Dosage: 5 | 10 MG, IF NECESSARY A MAXIMUM OF TWO TABLETS PER DAY, 1DF
     Route: 048
  11. PANTOPRAZOLE SODIUM [Concomitant]
     Active Substance: PANTOPRAZOLE SODIUM
     Indication: Product used for unknown indication
     Dosage: 40 MILLIGRAM DAILY; 1-0-0-0
     Route: 048
  12. Berodual 0,05mg/0,02mg [Concomitant]
     Indication: Product used for unknown indication
     Dosage: 0.02 | 0.05 UG, IF NECESSARY, METERED DOSE INHALER, 1DF
     Route: 055
  13. Ultibro Breezhaler 85Mikrogramm/43Mikrogramm [Concomitant]
     Indication: Product used for unknown indication
     Dosage: 1 DOSAGE FORMS DAILY; 50 | 110 UG, 1-0-0-0, CAPSULES FOR INHALATION
     Route: 055
  14. ROFLUMILAST [Concomitant]
     Active Substance: ROFLUMILAST
     Indication: Product used for unknown indication
     Dosage: .5 MILLIGRAM DAILY; 1-0-0-0
     Route: 048
  15. AMIODARONE [Concomitant]
     Active Substance: AMIODARONE
     Indication: Product used for unknown indication
     Dosage: 200 MILLIGRAM DAILY; 1-0-0-0
     Route: 048
  16. BENSERAZIDE\LEVODOPA [Concomitant]
     Active Substance: BENSERAZIDE\LEVODOPA
     Indication: Product used for unknown indication
     Dosage: 1 DOSAGE FORMS DAILY; 25|100 MG, 0-0-0-1,

REACTIONS (10)
  - Product prescribing error [Unknown]
  - Product prescribing error [Unknown]
  - Weight decreased [Unknown]
  - Fluid intake reduced [Unknown]
  - Constipation [Unknown]
  - General physical health deterioration [Unknown]
  - Nausea [Unknown]
  - Dizziness [Unknown]
  - Angina pectoris [Unknown]
  - Fatigue [Unknown]
